FAERS Safety Report 4384625-8 (Version None)
Quarter: 2004Q2

REPORT INFORMATION
  Report Type: 
  Country: None (occurrence: None)
  Receive Date: 20040625
  Receipt Date: 20030826
  Transmission Date: 20050107
  Serious: No
  Sender: FDA-Public Use
  Company Number: US-BRISTOL-MYERS SQUIBB COMPANY-12366803

PATIENT
  Age: 76 Year
  Sex: Female
  Weight: 78 kg

DRUGS (4)
  1. SINEMET CR [Suspect]
     Indication: PARKINSON'S DISEASE
     Dosage: 1 TAB AT 6AM,10AM,2PM,6PM,8PM (WITH PERMAX) AND 1/2 TAB AT 8AM, 12PM + 4PM. FOR 8-10 YRS
     Route: 048
  2. SINEMET CR [Suspect]
     Indication: PARKINSON'S DISEASE
     Dosage: CONSUMER REPORTED SHE WAS TAKING SINEMET CR 25/250, 1 TAB AT 10 PM AND 2 AM IF NEEDED
     Route: 048
  3. PERMAX [Concomitant]
     Dosage: TAKES AT 6AM,10AM,2PM,6PM + 8 PM WITH SINEMET 25/250
  4. MULTIVITAMIN [Concomitant]
     Dosage: ^OTC VITAMINS^

REACTIONS (3)
  - ASTHENIA [None]
  - DRUG EFFECT DECREASED [None]
  - SENSATION OF HEAVINESS [None]
